FAERS Safety Report 7573738-5 (Version None)
Quarter: 2011Q2

REPORT INFORMATION
  Report Type: 
  Country: None (occurrence: None)
  Receive Date: 20110627
  Receipt Date: 20110621
  Transmission Date: 20111010
  Serious: Yes (Hospitalization)
  Sender: FDA-Public Use
  Company Number: DE-ROCHE-783749

PATIENT
  Sex: Female
  Weight: 48 kg

DRUGS (4)
  1. BEVACIZUMAB [Suspect]
     Dosage: LAST DOSE PRIOR TO SAE: 08 JUN 2011
     Route: 042
     Dates: start: 20110224
  2. CAPECITABINE [Suspect]
     Dosage: FREQ: DAYS 1-14 EVERY 3 WEEKS, LAST DOSE PRIOR TO SAE: 15 JUN 2011
     Route: 048
     Dates: start: 20110223
  3. OXALIPLATIN [Suspect]
     Dosage: FREQ: DAYS 1 + 8 EVERY 3 WEEKS, LAST DOSE PRIOR TO SAE: 15 JUN 2011
     Route: 042
     Dates: start: 20110223
  4. EFFORTIL [Concomitant]
     Dosage: REPORTED AS EFFORDIL DROPS
     Dates: start: 19730101

REACTIONS (1)
  - CIRCULATORY COLLAPSE [None]
